FAERS Safety Report 18370869 (Version 1)
Quarter: 2020Q4

REPORT INFORMATION
  Report Type: Spontaneous
  Country: MX (occurrence: MX)
  Receive Date: 20201012
  Receipt Date: 20201012
  Transmission Date: 20210114
  Serious: Yes (Other)
  Sender: FDA-Public Use
  Company Number: MX-UNICHEM PHARMACEUTICALS (USA) INC-UCM202010-001149

PATIENT
  Age: 7 Month
  Sex: Male

DRUGS (15)
  1. ARIPIPRAZOLE. [Suspect]
     Active Substance: ARIPIPRAZOLE
     Indication: ATONIC SEIZURES
     Dosage: UNKNOWN
  2. TOPIRAMATE. [Suspect]
     Active Substance: TOPIRAMATE
     Indication: ATONIC SEIZURES
     Dosage: UNKNOWN
  3. MIRTAZAPINE. [Suspect]
     Active Substance: MIRTAZAPINE
     Indication: ATONIC SEIZURES
     Dosage: UNKNOWN
  4. ATOMOXETINE. [Suspect]
     Active Substance: ATOMOXETINE HYDROCHLORIDE
     Indication: ATONIC SEIZURES
     Dosage: UNKNOWN
  5. PHENYTOIN. [Suspect]
     Active Substance: PHENYTOIN
     Indication: ATONIC SEIZURES
     Dosage: UNKNOWN
  6. OLANZAPINE. [Suspect]
     Active Substance: OLANZAPINE
     Indication: ATONIC SEIZURES
     Dosage: UNKNOWN
  7. OXCARBAZEPINE. [Concomitant]
     Active Substance: OXCARBAZEPINE
     Indication: ATONIC SEIZURES
     Dosage: UNKNOWN
  8. DIVALPROEX SODIUM. [Suspect]
     Active Substance: DIVALPROEX SODIUM
     Indication: ATONIC SEIZURES
     Dosage: UNKNOWN
  9. SERTRALINE [Suspect]
     Active Substance: SERTRALINE HYDROCHLORIDE
     Indication: ATONIC SEIZURES
     Dosage: UNKNOWN
  10. LEVETIRACETAM. [Suspect]
     Active Substance: LEVETIRACETAM
     Indication: ATONIC SEIZURES
     Dosage: UNKNOWN
  11. QUETIAPINE. [Suspect]
     Active Substance: QUETIAPINE
     Indication: ATONIC SEIZURES
     Dosage: UNKNOWN
  12. ETHYL LOFLAZEPATE [Suspect]
     Active Substance: ETHYL LOFLAZEPATE
     Indication: ATONIC SEIZURES
     Dosage: UNKNOWN
  13. PHENOBARBITAL. [Suspect]
     Active Substance: PHENOBARBITAL
     Indication: ATONIC SEIZURES
     Dosage: UNKNOWN
  14. HALOPERIDOL. [Suspect]
     Active Substance: HALOPERIDOL
     Indication: ATONIC SEIZURES
     Dosage: UNKNOWN
  15. PREGABALIN. [Suspect]
     Active Substance: PREGABALIN
     Indication: ATONIC SEIZURES
     Dosage: UNKNOWN

REACTIONS (6)
  - Fanconi syndrome [Unknown]
  - Irritability [Unknown]
  - Tremor [Unknown]
  - Therapy non-responder [Unknown]
  - Insomnia [Unknown]
  - Hallucination [Unknown]
